FAERS Safety Report 15838752 (Version 1)
Quarter: 2019Q1

REPORT INFORMATION
  Report Type: Report from Study
  Country: US (occurrence: US)
  Receive Date: 20190117
  Receipt Date: 20190117
  Transmission Date: 20190417
  Serious: Yes (Hospitalization)
  Sender: FDA-Public Use
  Company Number: US-PFIZER INC-2019014133

PATIENT
  Age: 71 Year
  Sex: Female
  Weight: 56.2 kg

DRUGS (4)
  1. PF-05082566 [Suspect]
     Active Substance: UTOMILUMAB
     Dosage: UNK, CYCLIC
  2. AVELUMAB [Suspect]
     Active Substance: AVELUMAB
     Dosage: UNK, CYCLIC
  3. VINORELBINE TARTRATE. [Suspect]
     Active Substance: VINORELBINE TARTRATE
     Dosage: UNK, CYCLIC
  4. TRASTUZUMAB. [Suspect]
     Active Substance: TRASTUZUMAB
     Dosage: UNK, CYCLIC

REACTIONS (2)
  - Mental status changes [Unknown]
  - Dyspnoea [Unknown]

NARRATIVE: CASE EVENT DATE: 20181226
